FAERS Safety Report 18639527 (Version 1)
Quarter: 2020Q4

REPORT INFORMATION
  Report Type: Report from Study
  Country: US (occurrence: US)
  Receive Date: 20201219
  Receipt Date: 20201219
  Transmission Date: 20210114
  Serious: Yes (Other)
  Sender: FDA-Public Use
  Company Number: NVSC2020US328653

PATIENT
  Sex: Male

DRUGS (1)
  1. ENTRESTO [Suspect]
     Active Substance: SACUBITRIL\VALSARTAN
     Indication: PRODUCT USED FOR UNKNOWN INDICATION
     Dosage: 0.5 DF, BID (49/51 MG 1/2 TAB IN AM AND 1/2 TAB IN PM)
     Route: 048

REACTIONS (4)
  - Wrong technique in product usage process [Unknown]
  - Stress [Unknown]
  - Product prescribing error [Unknown]
  - Disability [Unknown]
